FAERS Safety Report 4494333-0 (Version None)
Quarter: 2004Q4

REPORT INFORMATION
  Report Type: 
  Country: None (occurrence: None)
  Receive Date: 20041102
  Receipt Date: 20041014
  Transmission Date: 20050328
  Serious: Yes (Hospitalization)
  Sender: FDA-Public Use
  Company Number: AU_041008125

PATIENT
  Age: 28 Year
  Sex: Female

DRUGS (2)
  1. OLANZAPINE [Suspect]
     Indication: BIPOLAR DISORDER
     Dosage: 10 MG
  2. VALPROATE SODIUM [Concomitant]

REACTIONS (1)
  - HYPERTHERMIA [None]
